FAERS Safety Report 24616498 (Version 4)
Quarter: 2025Q1

REPORT INFORMATION
  Report Type: Spontaneous
  Country: US (occurrence: US)
  Receive Date: 20241114
  Receipt Date: 20250108
  Transmission Date: 20250409
  Serious: No
  Sender: AMGEN
  Company Number: US-AMGEN-USASP2024223231

PATIENT
  Sex: Female
  Weight: 78.458 kg

DRUGS (4)
  1. TEPEZZA [Suspect]
     Active Substance: TEPROTUMUMAB-TRBW
     Indication: Toxic goitre
     Dosage: 785 MILLIGRAM, Q3WK (OVER 90 MINUTES, OSES 2-8 INTRAVENOUSLY EVERY 3 WEEKS)
     Route: 040
  2. TEPEZZA [Suspect]
     Active Substance: TEPROTUMUMAB-TRBW
     Route: 040
  3. WATER [Concomitant]
     Active Substance: WATER
     Route: 065
  4. SODIUM CHLORIDE [Concomitant]
     Active Substance: SODIUM CHLORIDE
     Route: 065

REACTIONS (2)
  - Blood pressure increased [Unknown]
  - Ear discomfort [Not Recovered/Not Resolved]
